FAERS Safety Report 7030416-9 (Version None)
Quarter: 2010Q4

REPORT INFORMATION
  Report Type: 
  Country: None (occurrence: None)
  Receive Date: 20101006
  Receipt Date: 20100927
  Transmission Date: 20110411
  Serious: Yes (Hospitalization)
  Sender: FDA-Public Use
  Company Number: NO-ASTRAZENECA-2010SE45547

PATIENT
  Age: 14 Year
  Sex: Male

DRUGS (2)
  1. XYLOCAIN ADRENALIN [Suspect]
     Indication: LOCAL ANAESTHESIA
     Dosage: UNKNOWN
     Route: 058
     Dates: start: 20100612, end: 20100612
  2. CETIRIZINE HCL [Concomitant]
     Indication: SEASONAL ALLERGY
     Dosage: DAILY
     Route: 048

REACTIONS (1)
  - RASH MACULAR [None]
